FAERS Safety Report 8914215 (Version 1)
Quarter: 2012Q4

REPORT INFORMATION
  Report Type: 
  Country: MX (occurrence: MX)
  Receive Date: 20121119
  Receipt Date: 20121119
  Transmission Date: 20130627
  Serious: Yes (Hospitalization)
  Sender: FDA-Public Use
  Company Number: MX-AMGEN-MEXSP2012072518

PATIENT
  Age: 58 Year
  Sex: Female
  Weight: 86 kg

DRUGS (4)
  1. ENBREL [Suspect]
     Indication: PSORIASIS
     Dosage: 50 mg, weekly
     Route: 058
     Dates: start: 20120903, end: 20121016
  2. METHOTREXATE SODIUM [Suspect]
     Dosage: UNK UNK, UNK
  3. ATACAND [Concomitant]
     Indication: HYPERTENSION
     Dosage: 80 mg, 1x/day
     Route: 048
     Dates: start: 2000
  4. METFORMIN [Concomitant]
     Indication: CARBOHYDRATE INTOLERANCE
     Dosage: 850 mg, 1x/day
     Route: 048
     Dates: start: 2012

REACTIONS (5)
  - Generalised erythema [Unknown]
  - Swelling face [Unknown]
  - Pruritus generalised [Unknown]
  - Pruritus [Unknown]
  - Drug ineffective [Unknown]
